FAERS Safety Report 9008869 (Version 1)
Quarter: 2013Q1

REPORT INFORMATION
  Report Type: Spontaneous
  Country: IE (occurrence: IE)
  Receive Date: 20130111
  Receipt Date: 20130111
  Transmission Date: 20140127
  Serious: Yes (Other)
  Sender: FDA-Public Use
  Company Number: IE-BAXTER-2013BAX001128

PATIENT
  Age: 36 Year
  Sex: Female

DRUGS (1)
  1. KIOVIG [Suspect]
     Indication: PRODUCT USED FOR UNKNOWN INDICATION
     Route: 042

REACTIONS (3)
  - Exposure during pregnancy [Recovered/Resolved]
  - No adverse event [Recovered/Resolved]
  - Caesarean section [None]
